FAERS Safety Report 12556344 (Version 1)
Quarter: 2016Q3

REPORT INFORMATION
  Report Type: Spontaneous
  Country: CN (occurrence: CN)
  Receive Date: 20160714
  Receipt Date: 20160714
  Transmission Date: 20161109
  Serious: Yes (Other)
  Sender: FDA-Public Use
  Company Number: CN-PFIZER INC-2016339333

PATIENT
  Age: 49 Year
  Sex: Female
  Weight: 38 kg

DRUGS (2)
  1. LATAMOXEF [Suspect]
     Active Substance: LATAMOXEF
     Dosage: 1 G, 2X/DAY
     Route: 041
     Dates: start: 20150518, end: 20150530
  2. MEDROL [Suspect]
     Active Substance: METHYLPREDNISOLONE
     Dosage: 16 G, 1X/DAY
     Route: 048
     Dates: start: 20150519, end: 20150526

REACTIONS (2)
  - Generalised tonic-clonic seizure [Recovering/Resolving]
  - Mental disorder [Recovering/Resolving]

NARRATIVE: CASE EVENT DATE: 20150529
